FAERS Safety Report 10796952 (Version 2)
Quarter: 2015Q1

REPORT INFORMATION
  Report Type: Spontaneous
  Country: US (occurrence: US)
  Receive Date: 20150216
  Receipt Date: 20150312
  Transmission Date: 20150721
  Serious: No
  Sender: FDA-Public Use
  Company Number: US-ROXANE LABORATORIES, INC.-2015-RO-00260RO

PATIENT
  Age: 44 Year
  Sex: Male

DRUGS (1)
  1. OXYMORPHONE HYDROCHLORIDE. [Suspect]
     Active Substance: OXYMORPHONE HYDROCHLORIDE
     Indication: PAIN
     Dosage: 40 MG
     Route: 048

REACTIONS (5)
  - Faeces discoloured [Recovered/Resolved]
  - Product quality issue [Unknown]
  - Feeling abnormal [Recovered/Resolved]
  - Abnormal faeces [Recovered/Resolved]
  - Gastrointestinal disorder [Recovered/Resolved]
